FAERS Safety Report 6557567-7 (Version None)
Quarter: 2010Q1

REPORT INFORMATION
  Report Type: 
  Country: None (occurrence: None)
  Receive Date: 20100129
  Receipt Date: 20100119
  Transmission Date: 20100710
  Serious: Yes (Other)
  Sender: FDA-Public Use
  Company Number: US-JNJFOC-20100107544

PATIENT

DRUGS (5)
  1. REMICADE [Suspect]
     Indication: CROHN'S DISEASE
     Route: 042
  2. REMICADE [Suspect]
     Route: 042
  3. REMICADE [Suspect]
     Route: 042
  4. SULFASALAZINE [Concomitant]
     Indication: CROHN'S DISEASE
  5. NARCOTIC ANALGESICS, NOS [Concomitant]
     Indication: CROHN'S DISEASE

REACTIONS (1)
  - BREAST CANCER [None]
